FAERS Safety Report 5122902-3 (Version None)
Quarter: 2006Q4

REPORT INFORMATION
  Report Type: 
  Country: None (occurrence: None)
  Receive Date: 20061004
  Receipt Date: 20061004
  Transmission Date: 20070319
  Serious: No
  Sender: FDA-Public Use
  Company Number: None

PATIENT
  Age: 75 Year
  Sex: Male
  Weight: 72 kg

DRUGS (1)
  1. PLAVIX [Suspect]
     Indication: CEREBROVASCULAR ACCIDENT
     Dosage: 75 MG PO QD
     Route: 048
     Dates: start: 20060202, end: 20060324

REACTIONS (3)
  - CONTUSION [None]
  - MYALGIA [None]
  - VISION BLURRED [None]
